FAERS Safety Report 11346210 (Version 2)
Quarter: 2015Q3

REPORT INFORMATION
  Report Type: Spontaneous
  Country: US (occurrence: US)
  Receive Date: 20150803
  Receipt Date: 20150831
  Transmission Date: 20151125
  Serious: No
  Sender: FDA-Public Use
  Company Number: US-ELI_LILLY_AND_COMPANY-US201003006738

PATIENT
  Age: 56 Year
  Sex: Male

DRUGS (10)
  1. ROSUVASTATIN [Concomitant]
     Active Substance: ROSUVASTATIN
  2. TIZANIDINE HYDROCHLORIDE. [Concomitant]
     Active Substance: TIZANIDINE HYDROCHLORIDE
  3. STRATTERA [Suspect]
     Active Substance: ATOMOXETINE HYDROCHLORIDE
     Dosage: UNK, UNK
     Route: 048
     Dates: start: 20100216
  4. VIGRAN [Concomitant]
  5. CYMBALTA [Suspect]
     Active Substance: DULOXETINE HYDROCHLORIDE
     Dosage: UNK, UNK
     Route: 048
     Dates: start: 20100216
  6. FEBUXOSTAT. [Concomitant]
     Active Substance: FEBUXOSTAT
  7. TELMISARTAN. [Concomitant]
     Active Substance: TELMISARTAN
  8. CELECOXIB. [Concomitant]
     Active Substance: CELECOXIB
  9. NIASPAN [Concomitant]
     Active Substance: NIACIN
     Indication: BLOOD TRIGLYCERIDES INCREASED
     Dosage: 500 MG, EACH EVENING
     Dates: start: 20100216
  10. HYDROCODONE [Concomitant]
     Active Substance: HYDROCODONE

REACTIONS (3)
  - Diarrhoea [Unknown]
  - Nausea [Unknown]
  - Apathy [Unknown]

NARRATIVE: CASE EVENT DATE: 201002
